FAERS Safety Report 13438255 (Version 1)
Quarter: 2017Q2

REPORT INFORMATION
  Report Type: Spontaneous
  Country: US (occurrence: US)
  Receive Date: 20170412
  Receipt Date: 20170412
  Transmission Date: 20170830
  Serious: No
  Sender: FDA-Public Use
  Company Number: US-SA-2017SA021120

PATIENT
  Age: 65 Year
  Sex: Female

DRUGS (3)
  1. NEXIUM [Concomitant]
     Active Substance: ESOMEPRAZOLE MAGNESIUM
     Route: 065
  2. ZYRTEC [Concomitant]
     Active Substance: CETIRIZINE HYDROCHLORIDE
     Route: 065
  3. ALLEGRA ALLERGY [Suspect]
     Active Substance: FEXOFENADINE HYDROCHLORIDE
     Indication: MULTIPLE ALLERGIES
     Dosage: START DATE 6 OR 10 YEARS AGO
     Route: 048

REACTIONS (4)
  - Rhinorrhoea [Unknown]
  - Eye pruritus [Unknown]
  - Drug ineffective [Unknown]
  - Lacrimation increased [Unknown]
